FAERS Safety Report 10174248 (Version 1)
Quarter: 2014Q2

REPORT INFORMATION
  Report Type: Spontaneous
  Country: US (occurrence: US)
  Receive Date: 20140515
  Receipt Date: 20140515
  Transmission Date: 20141212
  Serious: Yes (Death, Other)
  Sender: FDA-Public Use
  Company Number: US-PFIZER INC-2014130678

PATIENT
  Age: 80 Year
  Sex: Female

DRUGS (2)
  1. CLINDAMYCIN HCL [Suspect]
     Indication: OROPHARYNGEAL PAIN
     Dosage: 150 MG, 4X/DAY
  2. LORIDINE [Concomitant]
     Indication: OROPHARYNGEAL PAIN
     Route: 030

REACTIONS (1)
  - Pseudomembranous colitis [Fatal]
